FAERS Safety Report 5320355-3 (Version None)
Quarter: 2007Q2

REPORT INFORMATION
  Report Type: 
  Country: None (occurrence: None)
  Receive Date: 20070509
  Receipt Date: 20070427
  Transmission Date: 20071010
  Serious: Yes (Other)
  Sender: FDA-Public Use
  Company Number: JP-ROCHE-489930

PATIENT
  Age: 4 Year
  Sex: Female
  Weight: 15 kg

DRUGS (5)
  1. TAMIFLU [Suspect]
     Dosage: FORM: DRY SYRUP
     Route: 048
     Dates: start: 20070320, end: 20070322
  2. ASVERIN [Concomitant]
     Route: 048
     Dates: start: 20070320, end: 20070322
  3. METHISTA [Concomitant]
     Route: 048
     Dates: start: 20070320, end: 20070322
  4. PERIACTIN [Concomitant]
     Route: 048
     Dates: start: 20070320, end: 20070322
  5. PELEX [Concomitant]
     Route: 048
     Dates: start: 20070320, end: 20070322

REACTIONS (1)
  - CONVULSION [None]
